FAERS Safety Report 19991936 (Version 2)
Quarter: 2021Q4

REPORT INFORMATION
  Report Type: Spontaneous
  Country: DE (occurrence: DE)
  Receive Date: 20211026
  Receipt Date: 20211101
  Transmission Date: 20220304
  Serious: Yes (Other)
  Sender: FDA-Public Use
  Company Number: DE-SUN PHARMACEUTICAL INDUSTRIES LTD-2021R1-314765

PATIENT
  Age: 63 Year
  Sex: Female

DRUGS (2)
  1. DOCETAXEL [Suspect]
     Active Substance: DOCETAXEL
     Indication: Neoplasm
     Dosage: 1 CYCLE
     Route: 065
     Dates: start: 202004
  2. RAMUCIRUMAB [Suspect]
     Active Substance: RAMUCIRUMAB
     Indication: Neoplasm
     Dosage: UNK
     Route: 065
     Dates: start: 202004

REACTIONS (3)
  - Metastases to central nervous system [Unknown]
  - Skin toxicity [Recovering/Resolving]
  - Metastases to bone [Unknown]
